FAERS Safety Report 9537575 (Version 3)
Quarter: 2013Q4

REPORT INFORMATION
  Report Type: Report from Study
  Country: CA (occurrence: CA)
  Receive Date: 20130919
  Receipt Date: 20131009
  Transmission Date: 20140711
  Serious: Yes (Other)
  Sender: FDA-Public Use
  Company Number: CA-ROCHE-1159389

PATIENT
  Age: 60 Year
  Sex: Female
  Weight: 102.5 kg

DRUGS (18)
  1. RITUXAN [Suspect]
     Indication: RHEUMATOID ARTHRITIS
     Route: 042
     Dates: start: 20120214, end: 20121120
  2. ACTEMRA [Suspect]
     Indication: RHEUMATOID ARTHRITIS
     Route: 042
     Dates: start: 20130515
  3. METHOTREXATE [Concomitant]
  4. ADVAIR [Concomitant]
  5. GLIBENCLAMIDE [Concomitant]
  6. SALBUTAMOL [Concomitant]
  7. TRAZODONE [Concomitant]
  8. RAMIPRIL [Concomitant]
  9. METFORMIN [Concomitant]
  10. SPIRIVA [Concomitant]
  11. PREDNISONE [Concomitant]
  12. FOLIC ACID [Concomitant]
  13. PLAQUENIL [Concomitant]
  14. TYLENOL [Concomitant]
  15. NEXIUM [Concomitant]
  16. DIPHENHYDRAMINE HCL [Concomitant]
     Indication: PREMEDICATION
     Route: 048
     Dates: start: 20120214, end: 20121120
  17. ACETAMINOPHEN [Concomitant]
     Indication: PREMEDICATION
     Route: 048
     Dates: start: 20120214, end: 20121120
  18. METHYLPREDNISOLONE [Concomitant]
     Indication: PREMEDICATION
     Route: 042
     Dates: start: 20120214, end: 20121120

REACTIONS (11)
  - Lymphadenopathy [Not Recovered/Not Resolved]
  - Drug ineffective [Unknown]
  - Musculoskeletal pain [Recovered/Resolved]
  - Pain in extremity [Recovered/Resolved]
  - Oedema peripheral [Recovered/Resolved]
  - Pain in extremity [Not Recovered/Not Resolved]
  - Inflammation [Unknown]
  - Musculoskeletal stiffness [Unknown]
  - Dysphonia [Not Recovered/Not Resolved]
  - Fall [Unknown]
  - Spinal fracture [Not Recovered/Not Resolved]
